FAERS Safety Report 16500115 (Version 6)
Quarter: 2022Q3

REPORT INFORMATION
  Report Type: Report from Study
  Country: IN (occurrence: IN)
  Receive Date: 20190701
  Receipt Date: 20220901
  Transmission Date: 20221026
  Serious: Yes (Other)
  Sender: FDA-Public Use
  Company Number: PHHY2019IN149295

PATIENT
  Age: 66 Year
  Sex: Female
  Weight: 65 kg

DRUGS (6)
  1. CERITINIB [Suspect]
     Active Substance: CERITINIB
     Indication: Non-small cell lung cancer
     Dosage: 450 MG, QD
     Route: 048
     Dates: start: 20180828, end: 201904
  2. CERITINIB [Suspect]
     Active Substance: CERITINIB
     Dosage: 450 MG, QD
     Route: 048
     Dates: start: 201904, end: 20200217
  3. CERITINIB [Suspect]
     Active Substance: CERITINIB
     Dosage: 450 MG, EOD
     Route: 048
     Dates: start: 20200302
  4. CERITINIB [Suspect]
     Active Substance: CERITINIB
     Dosage: 300 MG, QD
     Route: 048
  5. CERITINIB [Suspect]
     Active Substance: CERITINIB
     Dosage: 450 MG, QD
     Route: 048
     Dates: start: 202010
  6. CERITINIB [Suspect]
     Active Substance: CERITINIB
     Dosage: 300 MG, QD
     Route: 065
     Dates: start: 202205

REACTIONS (13)
  - Malaise [Unknown]
  - Liver function test abnormal [Unknown]
  - Aspartate aminotransferase increased [Unknown]
  - Alanine aminotransferase increased [Unknown]
  - Viral infection [Recovered/Resolved]
  - Blood creatinine increased [Not Recovered/Not Resolved]
  - Therapy non-responder [Unknown]
  - Asthenia [Not Recovered/Not Resolved]
  - Peripheral swelling [Not Recovered/Not Resolved]
  - Fall [Not Recovered/Not Resolved]
  - Injury [Not Recovered/Not Resolved]
  - Gastric disorder [Not Recovered/Not Resolved]
  - Product use issue [Unknown]

NARRATIVE: CASE EVENT DATE: 20190301
